FAERS Safety Report 5314135-2 (Version None)
Quarter: 2007Q2

REPORT INFORMATION
  Report Type: 
  Country: None (occurrence: None)
  Receive Date: 20070426
  Receipt Date: 20070420
  Transmission Date: 20071010
  Serious: Yes (Death, Life-Threatening)
  Sender: FDA-Public Use
  Company Number: 2007SP004320

PATIENT
  Age: 80 Year
  Sex: Female
  Weight: 54 kg

DRUGS (18)
  1. TEMODAL [Suspect]
     Indication: ANAPLASTIC ASTROCYTOMA
     Dosage: 75 MG/M2; QD; PO
     Route: 048
     Dates: start: 20070110, end: 20070219
  2. BAKTAR (CON.) [Concomitant]
  3. RADIOTHERAPY (CON.) [Concomitant]
  4. ADALAT CR (CON.) [Concomitant]
  5. TEGRETOL (CON.) [Concomitant]
  6. ISOBIDE (CON.) [Concomitant]
  7. BIOFERMIN (CON.) [Concomitant]
  8. GASTER D (CON.) [Concomitant]
  9. PREDONINE (CON.) [Concomitant]
  10. BLOPRESS (CON.) [Concomitant]
  11. ZOFRAN (CON.) [Concomitant]
  12. INDACIN (CON.) [Concomitant]
  13. FERON (CON.) [Concomitant]
  14. PERDIPINE (CON.) [Concomitant]
  15. GLYCEOL (CON.) [Concomitant]
  16. RINDERON (CON.) [Concomitant]
  17. FLORID (CON.) [Concomitant]
  18. KENALOG (CON.) [Concomitant]

REACTIONS (2)
  - LYMPHOCYTE COUNT DECREASED [None]
  - SEPTIC SHOCK [None]
